FAERS Safety Report 11571319 (Version 1)
Quarter: 2015Q3

REPORT INFORMATION
  Report Type: Spontaneous
  Country: US (occurrence: US)
  Receive Date: 20150929
  Receipt Date: 20150929
  Transmission Date: 20151125
  Serious: No
  Sender: FDA-Public Use
  Company Number: US-BANPHARM-20153807

PATIENT
  Age: 91 Year
  Sex: Male
  Weight: 65.32 kg

DRUGS (8)
  1. LISINOPRIL. [Concomitant]
     Active Substance: LISINOPRIL
  2. PROPRANOLOL [Concomitant]
     Active Substance: PROPRANOLOL\PROPRANOLOL HYDROCHLORIDE
  3. SIMVASTATIN. [Concomitant]
     Active Substance: SIMVASTATIN
  4. UNSPECIFIED MEDICATION TO AID URINATION [Concomitant]
  5. LOPERAMIDE HCL [Suspect]
     Active Substance: LOPERAMIDE HYDROCHLORIDE
     Indication: DIARRHOEA
     Dosage: 2 DF, ONCE
     Route: 048
  6. PAXIL [Concomitant]
     Active Substance: PAROXETINE HYDROCHLORIDE
  7. UNSPECIFIED TRANQUILIZER [Concomitant]
  8. ASPIRIN. [Concomitant]
     Active Substance: ASPIRIN

REACTIONS (2)
  - Foreign body [Recovered/Resolved]
  - Oropharyngeal pain [Recovering/Resolving]

NARRATIVE: CASE EVENT DATE: 20150409
